FAERS Safety Report 9582030 (Version 1)
Quarter: 2013Q4

REPORT INFORMATION
  Report Type: Spontaneous
  Country: US (occurrence: US)
  Receive Date: 20131002
  Receipt Date: 20131002
  Transmission Date: 20140711
  Serious: No
  Sender: FDA-Public Use
  Company Number: US-AMGEN-USASP2013000020

PATIENT
  Age: 81 Year
  Sex: Female
  Weight: 54.42 kg

DRUGS (10)
  1. ENBREL [Suspect]
     Indication: RHEUMATOID ARTHRITIS
     Dosage: 50 MG, QWK
     Route: 058
  2. LEVOTHYROXIN [Concomitant]
     Dosage: 50 MUG, UNK
  3. RESTASIS [Concomitant]
     Dosage: 0.05 %, UNK
  4. PRILOSEC                           /00661201/ [Concomitant]
     Dosage: 10 MG, UNK
  5. MULTIVITAMINS [Concomitant]
     Dosage: UNK
  6. FISH OIL [Concomitant]
     Dosage: UNK
  7. VITAMIN D                          /00107901/ [Concomitant]
     Dosage: 400 UNIT, UNK
  8. FELODIPINE [Concomitant]
     Dosage: 5 MG, UNK
  9. MAGNESIUM [Concomitant]
     Dosage: 200 MG, UNK
  10. PREDNISONE [Concomitant]
     Dosage: 1 MG, UNK

REACTIONS (2)
  - Oropharyngeal pain [Unknown]
  - Headache [Unknown]
